FAERS Safety Report 6734632-2 (Version None)
Quarter: 2010Q2

REPORT INFORMATION
  Report Type: 
  Country: None (occurrence: None)
  Receive Date: 20100520
  Receipt Date: 20100514
  Transmission Date: 20101027
  Serious: Yes (Other)
  Sender: FDA-Public Use
  Company Number: AU-ABBOTT-10P-008-0640999-00

PATIENT
  Sex: Female

DRUGS (1)
  1. HUMIRA [Suspect]
     Indication: RHEUMATOID ARTHRITIS
     Dates: start: 20060801, end: 20100501

REACTIONS (3)
  - ERYTHEMA NODOSUM [None]
  - PYOGENIC GRANULOMA [None]
  - SYSTEMIC LUPUS ERYTHEMATOSUS [None]
